FAERS Safety Report 8234070-X (Version None)
Quarter: 2012Q1

REPORT INFORMATION
  Report Type: 
  Country: None (occurrence: None)
  Receive Date: 20120326
  Receipt Date: 20120326
  Transmission Date: 20120608
  Serious: Yes (Other)
  Sender: FDA-Public Use
  Company Number: None

PATIENT
  Age: 2 Month
  Sex: Male
  Weight: 4.9895 kg

DRUGS (2)
  1. HYLAND'S BABY TEETHING TABLETS [Suspect]
  2. HYLAND'S BABY TEETHING TABLETS [Suspect]
     Indication: TEETHING
     Dosage: 2 OR 3 TABLETS UNDER TOUNGE
     Route: 048
     Dates: start: 20120302, end: 20120323

REACTIONS (5)
  - PYREXIA [None]
  - STARING [None]
  - IRRITABILITY [None]
  - PRODUCT QUALITY ISSUE [None]
  - HYPOPNOEA [None]
